FAERS Safety Report 7450584-4 (Version None)
Quarter: 2011Q2

REPORT INFORMATION
  Report Type: 
  Country: None (occurrence: None)
  Receive Date: 20110502
  Receipt Date: 20110419
  Transmission Date: 20111010
  Serious: Yes (Hospitalization)
  Sender: FDA-Public Use
  Company Number: US-ELI_LILLY_AND_COMPANY-US201104001278

PATIENT
  Sex: Female

DRUGS (1)
  1. FORTEO [Suspect]
     Indication: OSTEOPOROSIS
     Dosage: 20 UG, QD
     Route: 065
     Dates: start: 20110319, end: 20110329

REACTIONS (15)
  - HYPERSENSITIVITY [None]
  - OROPHARYNGEAL PAIN [None]
  - NASOPHARYNGITIS [None]
  - FEELING ABNORMAL [None]
  - FATIGUE [None]
  - HEAD DISCOMFORT [None]
  - DISTURBANCE IN ATTENTION [None]
  - NASAL CONGESTION [None]
  - DRUG HYPERSENSITIVITY [None]
  - DISCOMFORT [None]
  - BONE PAIN [None]
  - HEADACHE [None]
  - PHARYNGEAL ERYTHEMA [None]
  - DIZZINESS [None]
  - ASTHENIA [None]
